FAERS Safety Report 4938842-6 (Version None)
Quarter: 2006Q1

REPORT INFORMATION
  Report Type: 
  Country: None (occurrence: None)
  Receive Date: 20060309
  Receipt Date: 20050429
  Transmission Date: 20060701
  Serious: Yes (Hospitalization)
  Sender: FDA-Public Use
  Company Number: US-MERCK-0505USA00125

PATIENT
  Age: 62 Year
  Sex: Male
  Weight: 102 kg

DRUGS (7)
  1. VIOXX [Suspect]
     Indication: ARTHRITIS
     Route: 048
     Dates: end: 20040331
  2. VIOXX [Suspect]
     Route: 048
     Dates: end: 20040331
  3. ACTOS [Concomitant]
     Route: 065
  4. ALLEGRA [Concomitant]
     Route: 065
  5. COMBIVENT [Concomitant]
     Route: 065
  6. ALEVE [Concomitant]
     Route: 065
  7. ADVIL [Concomitant]
     Route: 065

REACTIONS (9)
  - ACUTE MYOCARDIAL INFARCTION [None]
  - ANGINA PECTORIS [None]
  - BRONCHITIS [None]
  - DIABETES MELLITUS NON-INSULIN-DEPENDENT [None]
  - EMPYEMA [None]
  - HEART INJURY [None]
  - NORMOCHROMIC NORMOCYTIC ANAEMIA [None]
  - PLEURAL EFFUSION [None]
  - PNEUMONIA [None]
